FAERS Safety Report 9506552 (Version 2)
Quarter: 2013Q3

REPORT INFORMATION
  Report Type: Report from Study
  Country: DK (occurrence: DK)
  Receive Date: 20130906
  Receipt Date: 20130906
  Transmission Date: 20140515
  Serious: Yes (Hospitalization)
  Sender: FDA-Public Use
  Company Number: PHHO2013DK002769

PATIENT
  Age: 67 Year
  Sex: Female

DRUGS (2)
  1. AFINITOR [Suspect]
     Indication: BREAST CANCER METASTATIC
     Dosage: 10 MG,
     Route: 048
     Dates: start: 20121213, end: 20130226
  2. EXEMESTANE [Suspect]
     Indication: BREAST CANCER METASTATIC
     Dosage: 25 MG, UNK
     Route: 048
     Dates: start: 20121213

REACTIONS (1)
  - Confusional state [Unknown]
